FAERS Safety Report 5892978-4 (Version None)
Quarter: 2008Q3

REPORT INFORMATION
  Report Type: 
  Country: None (occurrence: None)
  Receive Date: 20080919
  Receipt Date: 20080911
  Transmission Date: 20090109
  Serious: Yes (Disabling)
  Sender: FDA-Public Use
  Company Number: OSCN-PR-0801S-0016

PATIENT
  Age: 34 Year
  Sex: Male

DRUGS (3)
  1. OMNISCAN [Suspect]
     Indication: VON HIPPEL-LINDAU DISEASE
     Dosage: 16 ADMINISTRATIONS
  2. EPOGEN [Concomitant]
  3. DARBEPOIETIN [Concomitant]

REACTIONS (11)
  - CONDITION AGGRAVATED [None]
  - EXTREMITY CONTRACTURE [None]
  - GRIP STRENGTH DECREASED [None]
  - HISTOLOGY ABNORMAL [None]
  - HYPOKINESIA [None]
  - JOINT STIFFNESS [None]
  - MOBILITY DECREASED [None]
  - MUSCULOSKELETAL STIFFNESS [None]
  - NEPHROGENIC SYSTEMIC FIBROSIS [None]
  - RENAL TRANSPLANT [None]
  - WALKING AID USER [None]
